FAERS Safety Report 25312023 (Version 1)
Quarter: 2025Q2

REPORT INFORMATION
  Report Type: Spontaneous
  Country: IT (occurrence: IT)
  Receive Date: 20250514
  Receipt Date: 20250514
  Transmission Date: 20250717
  Serious: Yes (Other)
  Sender: NOVARTIS
  Company Number: IT-002147023-NVSC2025IT076431

PATIENT
  Age: 75 Year
  Sex: Male

DRUGS (9)
  1. DABRAFENIB [Suspect]
     Active Substance: DABRAFENIB
     Indication: Craniopharyngioma
     Dosage: 150 MG, BID
     Route: 048
  2. DABRAFENIB [Suspect]
     Active Substance: DABRAFENIB
     Indication: BRAF V600E mutation positive
     Dosage: 150 MG, BID
     Route: 048
  3. DABRAFENIB [Suspect]
     Active Substance: DABRAFENIB
     Dosage: 75 MG, BID
     Route: 048
  4. DABRAFENIB [Suspect]
     Active Substance: DABRAFENIB
     Dosage: 75 MG, BID
     Route: 048
  5. DABRAFENIB [Suspect]
     Active Substance: DABRAFENIB
     Route: 048
  6. TRAMETINIB [Suspect]
     Active Substance: TRAMETINIB
     Indication: Craniopharyngioma
     Dosage: 2 MG, QD
     Route: 048
  7. TRAMETINIB [Suspect]
     Active Substance: TRAMETINIB
     Indication: BRAF V600E mutation positive
     Dosage: 2 MG, QD
     Route: 048
  8. TRAMETINIB [Suspect]
     Active Substance: TRAMETINIB
     Dosage: 2 MG, QD
     Route: 048
  9. TRAMETINIB [Suspect]
     Active Substance: TRAMETINIB
     Route: 048

REACTIONS (3)
  - Disease recurrence [Recovered/Resolved]
  - Disease recurrence [Recovered/Resolved]
  - Off label use [Unknown]

NARRATIVE: CASE EVENT DATE: 20211201
